FAERS Safety Report 5239413-7 (Version None)
Quarter: 2007Q1

REPORT INFORMATION
  Report Type: 
  Country: None (occurrence: None)
  Receive Date: 20070216
  Receipt Date: 20070209
  Transmission Date: 20070707
  Serious: Yes (Other)
  Sender: FDA-Public Use
  Company Number: US-JNJFOC-20070202834

PATIENT
  Sex: Male
  Weight: 127.92 kg

DRUGS (5)
  1. FENTANYL TRANSDERMAL SYSTEM [Suspect]
     Indication: PAIN IN EXTREMITY
     Route: 062
  2. FENTANYL TRANSDERMAL SYSTEM [Suspect]
     Indication: ARTHRALGIA
     Route: 062
  3. MAXZIDE [Concomitant]
     Indication: HYPERTENSION
     Route: 048
  4. VISTARIL [Concomitant]
     Indication: MUSCLE SPASMS
     Route: 048
  5. METFORMIN HCL [Concomitant]
     Indication: DIABETES MELLITUS
     Route: 048

REACTIONS (2)
  - APPLICATION SITE VESICLES [None]
  - DIABETES MELLITUS NON-INSULIN-DEPENDENT [None]
